FAERS Safety Report 5968210-X (Version None)
Quarter: 2008Q4

REPORT INFORMATION
  Report Type: 
  Country: None (occurrence: None)
  Receive Date: 20081126
  Receipt Date: 20081117
  Transmission Date: 20090506
  Serious: Yes (Hospitalization)
  Sender: FDA-Public Use
  Company Number: A0758363A

PATIENT
  Age: 62 Year
  Sex: Male
  Weight: 150 kg

DRUGS (4)
  1. AVANDIA [Suspect]
     Route: 048
     Dates: start: 20040101, end: 20071101
  2. TAGAMET [Concomitant]
  3. DARVOCET [Concomitant]
  4. ASPIRIN [Concomitant]

REACTIONS (1)
  - MYOCARDIAL INFARCTION [None]
